FAERS Safety Report 6331113-5 (Version None)
Quarter: 2009Q3

REPORT INFORMATION
  Report Type: 
  Country: None (occurrence: None)
  Receive Date: 20090827
  Receipt Date: 20090812
  Transmission Date: 20100115
  Serious: Yes (Other)
  Sender: FDA-Public Use
  Company Number: AU-ROCHE-649945

PATIENT

DRUGS (1)
  1. TAMIFLU [Suspect]
     Route: 048

REACTIONS (2)
  - ABNORMAL DREAMS [None]
  - HALLUCINATION [None]
